FAERS Safety Report 6329083-9 (Version None)
Quarter: 2009Q3

REPORT INFORMATION
  Report Type: 
  Country: None (occurrence: None)
  Receive Date: 20090824
  Receipt Date: 20090824
  Transmission Date: 20100115
  Serious: Yes (Life-Threatening, Hospitalization)
  Sender: FDA-Public Use
  Company Number: None

PATIENT
  Age: 38 Year
  Sex: Female
  Weight: 72.5755 kg

DRUGS (3)
  1. OCELLA BARR PHARMA [Suspect]
     Indication: ACNE
     Dosage: 28 DAILY PO
     Route: 048
     Dates: start: 20020701, end: 20090823
  2. OCELLA BARR PHARMA [Suspect]
     Indication: CONTRACEPTION
     Dosage: 28 DAILY PO
     Route: 048
     Dates: start: 20020701, end: 20090823
  3. YAZ [Suspect]
     Dosage: 28 DAILY PO
     Route: 048

REACTIONS (1)
  - GALLBLADDER DISORDER [None]
